FAERS Safety Report 24935862 (Version 1)
Quarter: 2025Q1

REPORT INFORMATION
  Report Type: Spontaneous
  Country: US (occurrence: None)
  Receive Date: 20250205
  Receipt Date: 20250205
  Transmission Date: 20250408
  Serious: Yes (Hospitalization)
  Sender: FDA-CTU
  Company Number: None

PATIENT
  Sex: Male

DRUGS (1)
  1. TALTZ [Suspect]
     Active Substance: IXEKIZUMAB
     Indication: Psoriasis
     Dosage: OTHER QUANTITY : INJECT 2 PENS;?FREQUENCY : WEEKLY;?INJECT 2 PENS UNDER THE SKIN AT WEEK 0, THEN 1 PEN AT WEEKS 2, 4, 6, 8, 10, AND 12. THEN INJECT 1 PEN EVERY 4 WEEKS THEREAFTER
     Route: 058
     Dates: start: 202501

REACTIONS (1)
  - Cardiac arrest [None]
